FAERS Safety Report 11099860 (Version 2)
Quarter: 2015Q2

REPORT INFORMATION
  Report Type: Spontaneous
  Country: JP (occurrence: JP)
  Receive Date: 20150508
  Receipt Date: 20150527
  Transmission Date: 20150821
  Serious: Yes (Other)
  Sender: FDA-Public Use
  Company Number: JP-JNJFOC-20150500887

PATIENT
  Age: 24 Year
  Sex: Female

DRUGS (3)
  1. TRAMCET [Suspect]
     Active Substance: ACETAMINOPHEN\TRAMADOL
     Indication: INTERVERTEBRAL DISC DISORDER
     Dosage: ONCE A DAY
     Route: 048
  2. TRAMCET [Suspect]
     Active Substance: ACETAMINOPHEN\TRAMADOL
     Indication: INTERVERTEBRAL DISC DISORDER
     Dosage: ONCE A DAY
     Route: 048
  3. TRAMCET [Suspect]
     Active Substance: ACETAMINOPHEN\TRAMADOL
     Indication: INTERVERTEBRAL DISC DISORDER
     Dosage: ONCE A DAY
     Route: 048

REACTIONS (3)
  - Tremor [Recovering/Resolving]
  - Nausea [Unknown]
  - Dizziness [Unknown]
